FAERS Safety Report 19974429 (Version 1)
Quarter: 2021Q4

REPORT INFORMATION
  Report Type: Report from Study
  Country: US (occurrence: US)
  Receive Date: 20211020
  Receipt Date: 20211020
  Transmission Date: 20220303
  Serious: Yes (Hospitalization)
  Sender: FDA-Public Use
  Company Number: US-MERCK HEALTHCARE KGAA-9272804

PATIENT
  Age: 62 Year
  Sex: Female

DRUGS (1)
  1. REBIF [Suspect]
     Active Substance: INTERFERON BETA-1A
     Indication: Product used for unknown indication
     Dosage: PREFILLED SYRINGE
     Route: 058
     Dates: start: 20040823

REACTIONS (1)
  - Aortic valve replacement [Recovering/Resolving]

NARRATIVE: CASE EVENT DATE: 20210924
